FAERS Safety Report 7364310-0 (Version None)
Quarter: 2011Q1

REPORT INFORMATION
  Report Type: 
  Country: None (occurrence: None)
  Receive Date: 20110321
  Receipt Date: 20110310
  Transmission Date: 20110831
  Serious: Yes (Other)
  Sender: FDA-Public Use
  Company Number: B0706919A

PATIENT
  Age: 50 Year
  Sex: Female

DRUGS (4)
  1. SORIATANE [Suspect]
     Indication: PSORIASIS
     Dosage: 10MG PER DAY
     Route: 048
  2. AMITRIPTYLINE HCL [Concomitant]
     Indication: MIGRAINE
     Route: 065
  3. AMITRIPTYLINE HCL [Concomitant]
     Route: 065
  4. BETASERC [Concomitant]
     Indication: VERTIGO
     Route: 065

REACTIONS (2)
  - LOW DENSITY LIPOPROTEIN INCREASED [None]
  - BLOOD CHOLESTEROL INCREASED [None]
